FAERS Safety Report 7657862-4 (Version None)
Quarter: 2011Q3

REPORT INFORMATION
  Report Type: 
  Country: None (occurrence: None)
  Receive Date: 20110805
  Receipt Date: 20110729
  Transmission Date: 20111222
  Serious: No
  Sender: FDA-Public Use
  Company Number: US-BIOGENIDEC-2011BI026492

PATIENT
  Sex: Female

DRUGS (4)
  1. TYSABRI [Suspect]
     Indication: MULTIPLE SCLEROSIS
     Route: 042
     Dates: start: 20110116, end: 20110414
  2. BENADRYL [Concomitant]
     Indication: PREMEDICATION
  3. AVONEX [Concomitant]
     Indication: MULTIPLE SCLEROSIS
     Route: 030
     Dates: start: 20090730
  4. MEDICATION (NOS) [Concomitant]
     Indication: PREMEDICATION

REACTIONS (10)
  - SWELLING [None]
  - NAUSEA [None]
  - RASH [None]
  - HEADACHE [None]
  - MEMORY IMPAIRMENT [None]
  - VOMITING [None]
  - VISUAL IMPAIRMENT [None]
  - PRURITUS [None]
  - PALPITATIONS [None]
  - CHEST PAIN [None]
